FAERS Safety Report 8801512 (Version 2)
Quarter: 2012Q4

REPORT INFORMATION
  Report Type: 
  Country: ES (occurrence: ES)
  Receive Date: 20120921
  Receipt Date: 20121003
  Transmission Date: 20130627
  Serious: Yes (Other)
  Sender: FDA-Public Use
  Company Number: ES-JNJFOC-20120906756

PATIENT

DRUGS (7)
  1. NICOTINE [Suspect]
     Indication: SMOKING CESSATION THERAPY
     Route: 048
  2. NICOTINE [Suspect]
     Route: 061
  3. NICOTINE [Suspect]
     Indication: SMOKING CESSATION THERAPY
     Route: 061
  4. NICOTINE [Suspect]
     Route: 061
  5. NICOTINE [Suspect]
     Indication: SMOKING CESSATION THERAPY
     Route: 061
  6. BUPROPION [Suspect]
     Indication: SMOKING CESSATION THERAPY
     Route: 065
  7. VARENICLINE [Suspect]
     Indication: SMOKING CESSATION THERAPY
     Route: 065

REACTIONS (15)
  - Depression [Unknown]
  - Restlessness [Unknown]
  - Tooth disorder [Unknown]
  - Pruritus [Unknown]
  - Erythema [Unknown]
  - Eczema [Unknown]
  - Dyspepsia [Unknown]
  - Nausea [Unknown]
  - Vomiting [Unknown]
  - Palpitations [Unknown]
  - Dizziness [Unknown]
  - Headache [Unknown]
  - Insomnia [Unknown]
  - Sleep disorder [Unknown]
  - Flatulence [Unknown]
